FAERS Safety Report 18239276 (Version 1)
Quarter: 2020Q3

REPORT INFORMATION
  Report Type: Spontaneous
  Country: US (occurrence: US)
  Receive Date: 20200907
  Receipt Date: 20200907
  Transmission Date: 20201103
  Serious: No
  Sender: FDA-Public Use
  Company Number: US-PFIZER INC-2020344271

PATIENT
  Age: 55 Year
  Sex: Female
  Weight: 50.79 kg

DRUGS (1)
  1. INLYTA [Suspect]
     Active Substance: AXITINIB
     Indication: RENAL CANCER
     Dosage: 5 MG, 2X/DAY
     Route: 048
     Dates: start: 20200816

REACTIONS (5)
  - Chest discomfort [Unknown]
  - Cough [Unknown]
  - Fatigue [Unknown]
  - Dysphonia [Unknown]
  - Asthenia [Unknown]
